FAERS Safety Report 4917077-7 (Version None)
Quarter: 2006Q1

REPORT INFORMATION
  Report Type: 
  Country: None (occurrence: None)
  Receive Date: 20060214
  Receipt Date: 20060130
  Transmission Date: 20060701
  Serious: Yes (Death, Hospitalization)
  Sender: FDA-Public Use
  Company Number: 200601IM000134

PATIENT
  Age: 4 Month
  Sex: Female
  Weight: 5 kg

DRUGS (2)
  1. INTERFERON GAMMA-1B [Suspect]
     Indication: CHRONIC GRANULOMATOUS DISEASE
     Dates: start: 20030101
  2. ANTIFUNGAL TREATMENT [Concomitant]

REACTIONS (18)
  - ABSCESS [None]
  - ADHESION [None]
  - ASPERGILLOSIS [None]
  - BIOPSY CHEST WALL ABNORMAL [None]
  - CARDIO-RESPIRATORY ARREST [None]
  - CHRONIC GRANULOMATOUS DISEASE [None]
  - CRYING [None]
  - CYST [None]
  - DYSPHONIA [None]
  - HAEMOGLOBIN DECREASED [None]
  - HEART RATE INCREASED [None]
  - IMMUNODEFICIENCY [None]
  - LYMPHADENOPATHY [None]
  - MEDIASTINAL MASS [None]
  - NECROSIS [None]
  - OBSTRUCTIVE AIRWAYS DISORDER [None]
  - RESPIRATORY RATE INCREASED [None]
  - TACHYPNOEA [None]
